FAERS Safety Report 8531742-4 (Version None)
Quarter: 2012Q3

REPORT INFORMATION
  Report Type: 
  Country: None (occurrence: None)
  Receive Date: 20120723
  Receipt Date: 20120712
  Transmission Date: 20120928
  Serious: Yes (Hospitalization)
  Sender: FDA-Public Use
  Company Number: JP-ELI_LILLY_AND_COMPANY-JP201207000582

PATIENT
  Sex: Female
  Weight: 60.5 kg

DRUGS (12)
  1. TIMOPTOL XE [Concomitant]
     Indication: GLAUCOMA
     Dosage: 1 DROP, QD
     Dates: start: 20100101
  2. PRASUGREL HYDROCHLORIDE [Suspect]
     Dosage: UNK
     Dates: start: 20120629
  3. AMARYL [Concomitant]
     Indication: DIABETES MELLITUS
     Dosage: 1 MG, QD
     Route: 048
     Dates: start: 20110101
  4. ALFAROL [Concomitant]
     Indication: OSTEOPOROSIS
     Dosage: 0.5 UG, QD
     Route: 048
     Dates: start: 20120214
  5. LANSOPRAZOLE [Concomitant]
     Indication: PROPHYLAXIS
     Dosage: 15 MG, QD (AFTER BREAKFAST)
     Route: 048
     Dates: start: 20120220
  6. TRICHLORMETHIAZIDE [Concomitant]
     Indication: HYPERTENSION
     Dosage: 2 MG, QD
     Route: 048
     Dates: start: 20120320
  7. XALATAN [Concomitant]
     Indication: GLAUCOMA
     Dosage: 1 DROP, QD
     Route: 047
     Dates: start: 20100101
  8. PRASUGREL HYDROCHLORIDE [Suspect]
     Indication: ISCHAEMIC STROKE
     Dosage: UNK, QD
     Route: 048
     Dates: start: 20120320, end: 20120627
  9. METFORMIN HYDROCHLORIDE [Concomitant]
     Indication: DIABETES MELLITUS
     Dosage: 250 MG, BID
     Route: 048
     Dates: start: 20110101
  10. SENNOSIDE [Concomitant]
     Indication: CONSTIPATION
     Dosage: 24 MG, PRN
     Route: 048
     Dates: start: 20120222
  11. LIPITOR [Concomitant]
     Indication: ARTERIOSCLEROSIS
     Dosage: 10 MG, QD (AFTER BREAKFAST)
     Route: 048
     Dates: start: 20120214
  12. EXFORGE [Concomitant]
     Indication: HYPERTENSION
     Dosage: 1 DF, QD
     Route: 048
     Dates: start: 20120313

REACTIONS (1)
  - SIMPLE PARTIAL SEIZURES [None]
